FAERS Safety Report 9950001 (Version 1)
Quarter: 2014Q1

REPORT INFORMATION
  Report Type: Report from Study
  Country: US (occurrence: US)
  Receive Date: 20140304
  Receipt Date: 20140304
  Transmission Date: 20141002
  Serious: No
  Sender: FDA-Public Use
  Company Number: US-ABBVIE-13P-163-1067845-00

PATIENT
  Sex: Female
  Weight: 52.66 kg

DRUGS (5)
  1. HUMIRA [Suspect]
     Indication: PSORIATIC ARTHROPATHY
     Dates: start: 2008, end: 2011
  2. HUMIRA [Suspect]
     Indication: PSORIASIS
     Dates: start: 2011, end: 201302
  3. GABAPENTIN [Concomitant]
     Indication: PAIN
  4. SYNTHROID [Concomitant]
     Indication: HYPOTHYROIDISM
  5. TRAMADOL [Concomitant]
     Indication: PAIN

REACTIONS (2)
  - Drug ineffective [Recovered/Resolved]
  - Pain in extremity [Not Recovered/Not Resolved]
